FAERS Safety Report 24466694 (Version 1)
Quarter: 2024Q4

REPORT INFORMATION
  Report Type: Report from Study
  Country: US (occurrence: US)
  Receive Date: 20241018
  Receipt Date: 20241018
  Transmission Date: 20250114
  Serious: No
  Sender: ROCHE
  Company Number: US-ROCHE-3547747

PATIENT
  Age: 58 Year
  Sex: Female
  Weight: 76.0 kg

DRUGS (18)
  1. XOLAIR [Suspect]
     Active Substance: OMALIZUMAB
     Indication: Anaphylactic reaction
     Dosage: LAST INJECTION DATE: 10/APR/2024
     Route: 058
  2. XOLAIR [Suspect]
     Active Substance: OMALIZUMAB
  3. EPINEPHRINE [Concomitant]
     Active Substance: EPINEPHRINE
     Route: 030
     Dates: start: 20240409
  4. PROMETHIUM [Concomitant]
  5. ALBUTEROL [Concomitant]
     Active Substance: ALBUTEROL
     Dates: start: 20240117
  6. ASTELIN [Concomitant]
     Active Substance: AZELASTINE HYDROCHLORIDE
  7. DULERA [Concomitant]
     Active Substance: FORMOTEROL FUMARATE DIHYDRATE\MOMETASONE FUROATE
  8. PREMARIN [Concomitant]
     Active Substance: ESTROGENS, CONJUGATED
  9. FAMOTIDINE [Concomitant]
     Active Substance: FAMOTIDINE
  10. FLUTICASONE PROPIONATE [Concomitant]
     Active Substance: FLUTICASONE PROPIONATE
     Route: 045
     Dates: start: 20240129
  11. PEPCID [Concomitant]
     Active Substance: FAMOTIDINE
     Route: 048
     Dates: start: 20231127
  12. OMEPRAZOLE [Concomitant]
     Active Substance: OMEPRAZOLE
     Route: 048
     Dates: start: 20231108
  13. HYDROXYZINE HYDROCHLORIDE [Concomitant]
     Active Substance: HYDROXYZINE HYDROCHLORIDE
     Route: 048
     Dates: start: 20231108
  14. AZELASTINE [Concomitant]
     Active Substance: AZELASTINE
     Route: 045
  15. VITAMIN D3 [Concomitant]
     Active Substance: CHOLECALCIFEROL
  16. PROGESTERONE [Concomitant]
     Active Substance: PROGESTERONE
  17. ESTRADIOL [Concomitant]
     Active Substance: ESTRADIOL
  18. PROAIR HFA [Concomitant]
     Active Substance: ALBUTEROL SULFATE

REACTIONS (7)
  - Rhinitis allergic [Unknown]
  - Sinusitis [Recovering/Resolving]
  - Pneumonia [Unknown]
  - Gastrooesophageal reflux disease [Unknown]
  - Vitamin D deficiency [Unknown]
  - Off label use [Unknown]
  - Asthma [Recovering/Resolving]
